FAERS Safety Report 6820110-9 (Version None)
Quarter: 2010Q3

REPORT INFORMATION
  Report Type: 
  Country: None (occurrence: None)
  Receive Date: 20100707
  Receipt Date: 20100702
  Transmission Date: 20110219
  Serious: Yes (Death)
  Sender: FDA-Public Use
  Company Number: US-ABBOTT-07P-163-0430242-00

PATIENT
  Sex: Female
  Weight: 59.02 kg

DRUGS (3)
  1. HUMIRA [Suspect]
     Indication: RHEUMATOID ARTHRITIS
     Route: 058
     Dates: start: 20050101, end: 20090101
  2. HUMIRA [Suspect]
     Route: 058
  3. TRILEPTAL [Concomitant]
     Indication: FACIAL PAIN
     Dosage: DAILY
     Route: 048

REACTIONS (3)
  - DEATH [None]
  - IMPAIRED HEALING [None]
  - WHITE BLOOD CELL COUNT DECREASED [None]
